FAERS Safety Report 25172891 (Version 1)
Quarter: 2025Q2

REPORT INFORMATION
  Report Type: Spontaneous
  Country: US (occurrence: US)
  Receive Date: 20250408
  Receipt Date: 20250408
  Transmission Date: 20250717
  Serious: No
  Sender: SYNDAX
  Company Number: US-SYNDAX PHARMACEUTICALS, INC.-2025US000312

PATIENT
  Sex: Female
  Weight: 89.383 kg

DRUGS (2)
  1. REVUFORJ [Suspect]
     Active Substance: REVUMENIB CITRATE
     Indication: Leukaemia
     Dosage: 160 MILLIGRAM, BID
     Route: 048
     Dates: start: 20241221
  2. VENCLEXTA [Suspect]
     Active Substance: VENETOCLAX
     Indication: Leukaemia
     Dosage: 200 MILLIGRAM, DAILY
     Route: 048
     Dates: start: 20241221

REACTIONS (1)
  - Neutrophil count decreased [Unknown]
